FAERS Safety Report 9151703 (Version 2)
Quarter: 2013Q4

REPORT INFORMATION
  Report Type: Report from Study
  Country: BR (occurrence: BR)
  Receive Date: 20130308
  Receipt Date: 20131217
  Transmission Date: 20140711
  Serious: Yes (Hospitalization, Other)
  Sender: FDA-Public Use
  Company Number: BR-AMGEN-US253622

PATIENT
  Age: 54 Year
  Sex: Female
  Weight: 78 kg

DRUGS (9)
  1. FLUOXETINE [Concomitant]
     Indication: DEPRESSION
     Dosage: UNK
  2. METHOTREXATE [Concomitant]
     Dosage: UNK
  3. OMEPRAZOLE [Concomitant]
     Dosage: UNK
  4. PREDNISONE [Concomitant]
     Dosage: UNK
  5. CALCIUM [Concomitant]
     Indication: BONE DISORDER
     Dosage: UNK
  6. ETANERCEPT [Suspect]
     Indication: RHEUMATOID ARTHRITIS
     Dosage: 25 MG, WEEKLY
     Route: 058
     Dates: start: 20070916
  7. ETANERCEPT [Suspect]
     Dosage: 50 MG, WEEKLY
     Route: 058
     Dates: start: 20080312, end: 20111126
  8. ETANERCEPT [Suspect]
     Dosage: 50 MG, ONCE WEEKLY
     Route: 058
     Dates: start: 2011
  9. ALENDRONATE SODIUM [Concomitant]
     Dosage: UNK

REACTIONS (12)
  - Injection site mass [Unknown]
  - Injection site erythema [Not Recovered/Not Resolved]
  - Injection site reaction [Unknown]
  - Injection site pruritus [Not Recovered/Not Resolved]
  - Injection site swelling [Not Recovered/Not Resolved]
  - Injection site discolouration [Unknown]
  - Spinal fracture [Unknown]
  - Accident [Recovered/Resolved with Sequelae]
  - Pain [Unknown]
  - Injection site pain [Not Recovered/Not Resolved]
  - Papule [Unknown]
  - Wrong technique in drug usage process [Unknown]
